FAERS Safety Report 13640720 (Version 1)
Quarter: 2017Q2

REPORT INFORMATION
  Report Type: Spontaneous
  Country: US (occurrence: US)
  Receive Date: 20170609
  Receipt Date: 20170609
  Transmission Date: 20170830
  Serious: Yes (Life-Threatening, Disabling, Other)
  Sender: FDA-Public Use
  Company Number: None

PATIENT
  Age: 70 Year
  Sex: Male
  Weight: 121.5 kg

DRUGS (3)
  1. ORBACTIV [Suspect]
     Active Substance: ORITAVANCIN
     Indication: INFECTION
     Dates: start: 20160203, end: 20160203
  2. INSULIN [Concomitant]
     Active Substance: INSULIN NOS
  3. IMMINOM [Concomitant]

REACTIONS (5)
  - Blood glucose decreased [None]
  - Loss of consciousness [None]
  - Diarrhoea [None]
  - Dyspnoea [None]
  - Chest discomfort [None]

NARRATIVE: CASE EVENT DATE: 20160209
